FAERS Safety Report 22982765 (Version 2)
Quarter: 2023Q4

REPORT INFORMATION
  Report Type: Report from Study
  Country: CO (occurrence: CO)
  Receive Date: 20230926
  Receipt Date: 20231009
  Transmission Date: 20240110
  Serious: Yes (Other)
  Sender: FDA-Public Use
  Company Number: CO-BAYER-2023A134338

PATIENT
  Age: 56 Year
  Sex: Male

DRUGS (6)
  1. EYLEA [Suspect]
     Active Substance: AFLIBERCEPT
     Indication: Diabetic retinal oedema
     Dosage: VIAL OF 40 MG/ML WITH AFLIBERCEPT 2MG; LEFT EYE , SOLUTION FOR INJECTION 40 MG/ML
     Route: 031
     Dates: start: 20210308, end: 20210308
  2. EYLEA [Suspect]
     Active Substance: AFLIBERCEPT
     Dosage: VIAL OF 40 MG/ML WITH AFLIBERCEPT 2MG; LEFT EYE , SOLUTION FOR INJECTION 40 MG/ML
     Route: 031
     Dates: start: 20210410, end: 20210410
  3. EYLEA [Suspect]
     Active Substance: AFLIBERCEPT
     Dosage: VIAL OF 40 MG/ML WITH AFLIBERCEPT 2MG; LEFT EYE , SOLUTION FOR INJECTION 40 MG/ML
     Route: 031
     Dates: start: 20210515, end: 20210515
  4. EYLEA [Suspect]
     Active Substance: AFLIBERCEPT
     Dosage: VIAL OF 40 MG/ML WITH AFLIBERCEPT 2MG; LEFT EYE , SOLUTION FOR INJECTION 40 MG/ML
     Route: 031
     Dates: start: 20210618, end: 20210618
  5. EYLEA [Suspect]
     Active Substance: AFLIBERCEPT
     Dosage: VIAL OF 40 MG/ML WITH AFLIBERCEPT 2MG; LEFT EYE , SOLUTION FOR INJECTION 40 MG/ML
     Route: 031
     Dates: start: 20210722, end: 20210722
  6. EYLEA [Suspect]
     Active Substance: AFLIBERCEPT
     Dosage: UNK, SOLUTION FOR INJECTION 40 MG/ML
     Route: 031

REACTIONS (1)
  - Glaucoma surgery [Unknown]
